FAERS Safety Report 9525460 (Version 1)
Quarter: 2013Q1

REPORT INFORMATION
  Report Type: Spontaneous
  Country: US (occurrence: None)
  Receive Date: 20130314
  Receipt Date: 20130314
  Transmission Date: 20140127
  Serious: No
  Sender: FDA-Public Use
  Company Number: 1301USA012916

PATIENT
  Age: 57 Year
  Sex: Male
  Weight: 72.6 kg

DRUGS (9)
  1. VICTRELIS (BOCEPREVIR) CAPSULE, 200MG [Suspect]
     Dosage: TAKE 4 CAPSULES BY MOUTH EVERY 7-9 HOURS, ORAL
     Route: 048
  2. RIBAVIRIN [Suspect]
     Route: 048
  3. PEGASYS [Suspect]
  4. AMLODIPINE [Concomitant]
  5. ALLEGRA [Concomitant]
  6. PRILOSEC [Concomitant]
  7. POTASSIUM [Concomitant]
  8. GLUCO-CONTROL (CHROMIUM POLYNICOTINATE, VANADIUM) [Concomitant]
  9. ALEVE (NAPROXEN SODIUM) [Concomitant]

REACTIONS (2)
  - Dysgeusia [None]
  - Rash [None]
